FAERS Safety Report 8798488 (Version 2)
Quarter: 2012Q4

REPORT INFORMATION
  Report Type: 
  Country: US (occurrence: US)
  Receive Date: 20120920
  Receipt Date: 20121115
  Transmission Date: 20130627
  Serious: Yes (Death, Hospitalization)
  Sender: FDA-Public Use
  Company Number: US-ROCHE-1122953

PATIENT
  Sex: Male

DRUGS (7)
  1. AVASTIN [Suspect]
     Indication: COLON CANCER
     Dosage: or 445 mg
     Route: 042
     Dates: start: 20100124, end: 20101112
  2. AVASTIN [Suspect]
     Dosage: treatemnt continued for 2 weeks
     Route: 042
  3. OXALIPLATIN [Concomitant]
     Route: 065
     Dates: start: 201001, end: 20101112
  4. 5-FLUOROURACIL [Concomitant]
     Route: 065
     Dates: end: 20101112
  5. 5-FLUOROURACIL [Concomitant]
     Dosage: treatment continued
     Route: 065
  6. LEUCOVORIN [Concomitant]
     Route: 065
     Dates: end: 20101112
  7. LEUCOVORIN [Concomitant]
     Dosage: treatment continued
     Route: 065

REACTIONS (2)
  - Death [Fatal]
  - Renal failure [Unknown]
